FAERS Safety Report 17765314 (Version 4)
Quarter: 2024Q1

REPORT INFORMATION
  Report Type: Spontaneous
  Country: US (occurrence: US)
  Receive Date: 20200511
  Receipt Date: 20240220
  Transmission Date: 20240410
  Serious: Yes (Other)
  Sender: FDA-Public Use
  Company Number: US-PFIZER INC-2019302935

PATIENT
  Age: 70 Year
  Sex: Female
  Weight: 72.57 kg

DRUGS (3)
  1. IBRANCE [Suspect]
     Active Substance: PALBOCICLIB
     Indication: Breast cancer metastatic
     Dosage: 125 MG
     Dates: start: 20180824
  2. IBRANCE [Suspect]
     Active Substance: PALBOCICLIB
     Dosage: TAKE 100 MG DAILY, ON DAYS 1-21 EVERY 28 DAYS
     Route: 048
     Dates: start: 20210526
  3. TAMOXIFEN [Concomitant]
     Active Substance: TAMOXIFEN
     Indication: Breast cancer
     Dosage: 20 MG, DAILY
     Dates: start: 2017

REACTIONS (8)
  - Neutropenia [Unknown]
  - White blood cell count decreased [Unknown]
  - Neoplasm progression [Unknown]
  - Off label use [Unknown]
  - Product use issue [Unknown]
  - Haemoglobin decreased [Unknown]
  - Haematocrit decreased [Unknown]
  - Platelet count decreased [Unknown]

NARRATIVE: CASE EVENT DATE: 20180824
